FAERS Safety Report 7571383-9 (Version None)
Quarter: 2011Q2

REPORT INFORMATION
  Report Type: 
  Country: None (occurrence: None)
  Receive Date: 20110624
  Receipt Date: 20110622
  Transmission Date: 20111010
  Serious: Yes (Other)
  Sender: FDA-Public Use
  Company Number: US-PFIZER INC-2011139236

PATIENT
  Sex: Male
  Weight: 81.633 kg

DRUGS (4)
  1. ADVIL LIQUI-GELS [Suspect]
     Indication: BACK PAIN
     Dosage: 400 MG, 1X/DAY
     Route: 048
  2. LISINOPRIL [Concomitant]
     Dosage: UNK
  3. CRESTOR [Concomitant]
     Dosage: 20 MG, UNK
  4. NEXIUM [Concomitant]
     Dosage: UNK

REACTIONS (6)
  - PRURITUS [None]
  - CHEST DISCOMFORT [None]
  - FEELING HOT [None]
  - FLUSHING [None]
  - ERYTHEMA [None]
  - DYSPNOEA [None]
